FAERS Safety Report 7592749-7 (Version None)
Quarter: 2011Q3

REPORT INFORMATION
  Report Type: 
  Country: None (occurrence: None)
  Receive Date: 20110706
  Receipt Date: 20110629
  Transmission Date: 20111222
  Serious: Yes (Other)
  Sender: FDA-Public Use
  Company Number: US-PFIZER INC-2011149848

PATIENT
  Sex: Female

DRUGS (1)
  1. NEURONTIN [Suspect]
     Indication: INTERVERTEBRAL DISC PROTRUSION
     Dosage: 300 MG, ONE PILL FIRST DAY, 2 PILLS SECOND DAY

REACTIONS (2)
  - VIOLENCE-RELATED SYMPTOM [None]
  - PERSONALITY CHANGE [None]
